FAERS Safety Report 4885013-8 (Version None)
Quarter: 2006Q1

REPORT INFORMATION
  Report Type: 
  Country: None (occurrence: None)
  Receive Date: 20060119
  Receipt Date: 20060113
  Transmission Date: 20060701
  Serious: Yes (Other)
  Sender: FDA-Public Use
  Company Number: PHFR2006GB00535

PATIENT
  Age: 43 Year
  Sex: Male

DRUGS (2)
  1. CO-CODAMOL [Concomitant]
     Dosage: '30/500' 2 TABLETS
     Route: 048
  2. VOLTAREN [Suspect]
     Indication: PAIN
     Dosage: 50 MG/DAY
     Route: 048
     Dates: start: 20051227, end: 20051227

REACTIONS (2)
  - CIRCULATORY COLLAPSE [None]
  - RASH ERYTHEMATOUS [None]
